FAERS Safety Report 8680368 (Version 5)
Quarter: 2014Q2

REPORT INFORMATION
  Report Type: Spontaneous
  Country: US (occurrence: US)
  Receive Date: 20120724
  Receipt Date: 20140625
  Transmission Date: 20141212
  Serious: Yes (Hospitalization, Other)
  Sender: FDA-Public Use
  Company Number: US-009507513-1207USA004249

PATIENT
  Sex: Female
  Weight: 70.3 kg

DRUGS (3)
  1. FOSAMAX [Suspect]
     Indication: OSTEOPOROSIS
     Dosage: 70 MG, QW
     Route: 048
     Dates: start: 200506
  2. FOSAMAX PLUS D [Suspect]
     Indication: OSTEOPOROSIS
     Dosage: 70 MG/2800 IU
     Route: 048
     Dates: start: 200506, end: 200610
  3. ACIPHEX [Concomitant]
     Dosage: UNK
     Dates: start: 200510, end: 2007

REACTIONS (34)
  - Femur fracture [Unknown]
  - Femur fracture [Unknown]
  - Humerus fracture [Unknown]
  - Haematocrit decreased [Unknown]
  - Intramedullary rod insertion [Unknown]
  - Hip fracture [Unknown]
  - Open reduction of fracture [Unknown]
  - Femur fracture [Unknown]
  - Osteoarthritis [Unknown]
  - Osteoarthritis [Unknown]
  - Diabetes mellitus inadequate control [Unknown]
  - Sinus tachycardia [Unknown]
  - Fall [Unknown]
  - Back injury [Unknown]
  - Osteopenia [Unknown]
  - Chest pain [Unknown]
  - Arthropathy [Unknown]
  - Upper respiratory tract infection [Recovering/Resolving]
  - Treatment noncompliance [Unknown]
  - Goitre [Unknown]
  - Goitre [Unknown]
  - Cerumen impaction [Unknown]
  - Dysuria [Unknown]
  - Chest pain [Unknown]
  - Plasma protein metabolism disorder [Unknown]
  - Cellulitis [Unknown]
  - Sciatica [Unknown]
  - Anxiety [Unknown]
  - Depression [Unknown]
  - Pruritus [Unknown]
  - Muscle spasms [Unknown]
  - Constipation [Unknown]
  - Back pain [Unknown]
  - Gastrooesophageal reflux disease [Unknown]
